FAERS Safety Report 8376315-1 (Version None)
Quarter: 2012Q2

REPORT INFORMATION
  Report Type: 
  Country: None (occurrence: None)
  Receive Date: 20120522
  Receipt Date: 20120514
  Transmission Date: 20120825
  Serious: Yes (Other)
  Sender: FDA-Public Use
  Company Number: US-SANOFI-AVENTIS-2012SA035257

PATIENT
  Sex: Female

DRUGS (4)
  1. CARBOPLATIN [Suspect]
     Indication: BREAST CANCER
     Dosage: AREA UNDER THE CONCENTRATION CURVE OF 6 ON DAY 1
     Route: 042
  2. TRASTUZUMAB [Suspect]
     Route: 042
  3. TRASTUZUMAB [Suspect]
     Indication: BREAST CANCER
     Dosage: DAY 1, LOADING DOSE
     Route: 042
  4. DOCETAXEL [Suspect]
     Indication: BREAST CANCER
     Dosage: ON DAY 1
     Route: 042

REACTIONS (1)
  - CARDIOTOXICITY [None]
